FAERS Safety Report 6197755-5 (Version None)
Quarter: 2009Q2

REPORT INFORMATION
  Report Type: 
  Country: None (occurrence: None)
  Receive Date: 20090521
  Receipt Date: 20090515
  Transmission Date: 20091009
  Serious: Yes (Other)
  Sender: FDA-Public Use
  Company Number: GB-BRISTOL-MYERS SQUIBB COMPANY-13956131

PATIENT
  Age: 42 Year
  Sex: Female

DRUGS (6)
  1. REYATAZ [Suspect]
     Indication: ROUTINE HEALTH MAINTENANCE
     Route: 048
     Dates: start: 20061121
  2. REYATAZ [Suspect]
     Indication: HIV INFECTION
     Route: 048
     Dates: start: 20061121
  3. DIDANOSINE [Suspect]
     Indication: HIV INFECTION
     Route: 048
     Dates: start: 20061121
  4. RITONAVIR [Suspect]
     Indication: HIV INFECTION
     Route: 048
     Dates: start: 20061121
  5. ABACAVIR [Suspect]
     Indication: HIV INFECTION
     Route: 048
     Dates: start: 20061121
  6. METHYLDOPA [Concomitant]
     Indication: HYPERTENSION
     Route: 048
     Dates: start: 20070801, end: 20071212

REACTIONS (3)
  - FOCAL SEGMENTAL GLOMERULOSCLEROSIS [None]
  - LIVE BIRTH [None]
  - PREGNANCY [None]
